FAERS Safety Report 7136282-5 (Version None)
Quarter: 2010Q4

REPORT INFORMATION
  Report Type: 
  Country: None (occurrence: None)
  Receive Date: 20101206
  Receipt Date: 20101123
  Transmission Date: 20110411
  Serious: No
  Sender: FDA-Public Use
  Company Number: US-BIOGENIDEC-2010BI038262

PATIENT
  Age: 39 Year
  Sex: Female

DRUGS (1)
  1. TYSABRI [Suspect]
     Indication: MULTIPLE SCLEROSIS
     Route: 042
     Dates: start: 20080922

REACTIONS (9)
  - BLOOD CHOLESTEROL INCREASED [None]
  - DEAFNESS [None]
  - EAR PAIN [None]
  - HEADACHE [None]
  - INFECTION [None]
  - SENSORY LOSS [None]
  - STRESS [None]
  - VISUAL IMPAIRMENT [None]
  - WHITE BLOOD CELL DISORDER [None]
